FAERS Safety Report 15766170 (Version 1)
Quarter: 2018Q4

REPORT INFORMATION
  Report Type: Spontaneous
  Country: GB (occurrence: GB)
  Receive Date: 20181227
  Receipt Date: 20181227
  Transmission Date: 20190205
  Serious: Yes (Hospitalization)
  Sender: FDA-Public Use
  Company Number: GB-TEVA-2018-GB-991716

PATIENT
  Age: 75 Year
  Sex: Male

DRUGS (4)
  1. RASAGILINE. [Suspect]
     Active Substance: RASAGILINE
     Indication: PARKINSON^S DISEASE
     Dosage: 1 MILLIGRAM DAILY;
     Route: 065
  2. STALEVO [Suspect]
     Active Substance: CARBIDOPA\ENTACAPONE\LEVODOPA
     Indication: PARKINSON^S DISEASE
     Dosage: 3 DOSAGE FORMS DAILY; THREE TIMES A DAY
     Route: 065
  3. ATROPINE. [Suspect]
     Active Substance: ATROPINE
     Indication: SALIVARY HYPERSECRETION
     Dosage: .5 ML DAILY; 10MG/ML
     Route: 060
  4. PRAMIPEXOLE. [Suspect]
     Active Substance: PRAMIPEXOLE
     Indication: PARKINSON^S DISEASE
     Dosage: 2.62 MILLIGRAM DAILY; MODIFIED RELEASE
     Route: 065

REACTIONS (4)
  - Off label use [Unknown]
  - Condition aggravated [Recovered/Resolved]
  - Delirium [Recovered/Resolved]
  - Psychotic disorder [Recovered/Resolved]
